FAERS Safety Report 4993533-0 (Version None)
Quarter: 2006Q2

REPORT INFORMATION
  Report Type: 
  Country: None (occurrence: None)
  Receive Date: 20060503
  Receipt Date: 20060503
  Transmission Date: 20061013
  Serious: Yes (Other)
  Sender: FDA-Public Use
  Company Number: None

PATIENT
  Age: 25 Year
  Sex: Female
  Weight: 77.5651 kg

DRUGS (1)
  1. HABITROL [Suspect]
     Indication: SMOKING CESSATION THERAPY
     Dosage: 21 MG DAILY CUTANEOUS
     Route: 003
     Dates: start: 20060425, end: 20060426

REACTIONS (5)
  - ANXIETY [None]
  - COLD SWEAT [None]
  - DISORIENTATION [None]
  - HYPOAESTHESIA [None]
  - NAUSEA [None]
